FAERS Safety Report 18520409 (Version 1)
Quarter: 2020Q4

REPORT INFORMATION
  Report Type: Spontaneous
  Country: CN (occurrence: CN)
  Receive Date: 20201118
  Receipt Date: 20201118
  Transmission Date: 20210114
  Serious: Yes (Other)
  Sender: FDA-Public Use
  Company Number: CN-ASTRAZENECA-2020SF50668

PATIENT
  Age: 20164 Day
  Sex: Female
  Weight: 50 kg

DRUGS (5)
  1. PULMICORT RESPULES [Suspect]
     Active Substance: BUDESONIDE
     Indication: BRONCHITIS CHRONIC
     Route: 055
     Dates: start: 20201107, end: 20201107
  2. PULMICORT RESPULES [Suspect]
     Active Substance: BUDESONIDE
     Indication: BRONCHITIS CHRONIC
     Route: 055
  3. PULMICORT RESPULES [Suspect]
     Active Substance: BUDESONIDE
     Indication: ASTHMA
     Route: 055
     Dates: start: 20201107, end: 20201107
  4. BRICANYL [Concomitant]
     Active Substance: TERBUTALINE SULFATE
     Indication: BRONCHITIS CHRONIC
     Route: 055
     Dates: start: 20201107, end: 20201107
  5. PULMICORT RESPULES [Suspect]
     Active Substance: BUDESONIDE
     Indication: ASTHMA
     Route: 055

REACTIONS (3)
  - Palpitations [Recovering/Resolving]
  - Muscle spasms [Unknown]
  - Facial spasm [Recovering/Resolving]

NARRATIVE: CASE EVENT DATE: 20201107
